FAERS Safety Report 4768849-3 (Version None)
Quarter: 2005Q3

REPORT INFORMATION
  Report Type: 
  Country: None (occurrence: None)
  Receive Date: 20050914
  Receipt Date: 20050831
  Transmission Date: 20060218
  Serious: Yes (Hospitalization, Disabling, Other)
  Sender: FDA-Public Use
  Company Number: 2005123399

PATIENT
  Age: 75 Year
  Sex: Female
  Weight: 77.1115 kg

DRUGS (5)
  1. CELEBREX [Suspect]
     Indication: ARTHRITIS
     Dosage: 200 MG (200 MG, 1 IN 1 D), ORAL
     Route: 048
  2. NORVASC [Suspect]
     Indication: HYPERTENSION
     Dosage: 5 MG (5 MG, 1 IN 1 D)
     Dates: start: 19990101
  3. LIPITOR [Suspect]
     Indication: BLOOD CHOLESTEROL INCREASED
  4. BEXTRA [Suspect]
     Indication: ARTHRITIS
     Dosage: 20 MG (1 IN 1 D)
  5. BUMETADINE (BUMETADINE) [Concomitant]

REACTIONS (6)
  - ASTHENIA [None]
  - DIZZINESS [None]
  - HYPOAESTHESIA [None]
  - STOMACH DISCOMFORT [None]
  - TRANSIENT ISCHAEMIC ATTACK [None]
  - WALKING AID USER [None]
